FAERS Safety Report 4717731-6 (Version None)
Quarter: 2005Q3

REPORT INFORMATION
  Report Type: 
  Country: None (occurrence: None)
  Receive Date: 20050714
  Receipt Date: 20040921
  Transmission Date: 20060218
  Serious: No
  Sender: FDA-Public Use
  Company Number: 04H-163-0275148-00

PATIENT
  Sex: 0

DRUGS (2)
  1. DOPAMINE HCL [Suspect]
     Dosage: NOT REPORTED, NOT REPORTED, INTRAVENOUS
     Route: 042
  2. IV FLUIDS [Concomitant]

REACTIONS (1)
  - BLOOD PRESSURE SYSTOLIC DECREASED [None]
